FAERS Safety Report 4309436-0 (Version None)
Quarter: 2004Q1

REPORT INFORMATION
  Report Type: 
  Country: None (occurrence: None)
  Receive Date: 20040301
  Receipt Date: 20040225
  Transmission Date: 20041129
  Serious: Yes (Death)
  Sender: FDA-Public Use
  Company Number: 2004200966IE

PATIENT
  Sex: Female

DRUGS (1)
  1. EXEMESTANE VS. TAMOXIFEN(COMPARATOR - TAMOXIFEN) TABLET [Suspect]
     Indication: BREAST CANCER
     Dosage: 20 MG, QD, ORAL
     Route: 048
     Dates: start: 19990130, end: 20000801

REACTIONS (1)
  - VASCULAR DEMENTIA [None]
